FAERS Safety Report 12547857 (Version 1)
Quarter: 2016Q3

REPORT INFORMATION
  Report Type: Spontaneous
  Country: US (occurrence: US)
  Receive Date: 20160712
  Receipt Date: 20160712
  Transmission Date: 20161109
  Serious: No
  Sender: FDA-Public Use
  Company Number: US-ASTRAZENECA-2016SE71011

PATIENT
  Age: 26035 Day
  Sex: Male
  Weight: 97.5 kg

DRUGS (2)
  1. BYDUREON [Suspect]
     Active Substance: EXENATIDE
     Indication: TYPE 2 DIABETES MELLITUS
     Route: 058
     Dates: start: 20160509
  2. BYDUREON [Suspect]
     Active Substance: EXENATIDE
     Indication: HYPOTENSION
     Route: 058
     Dates: start: 20160509

REACTIONS (4)
  - Injection site mass [Unknown]
  - Pruritus [Unknown]
  - Product use issue [Unknown]
  - Off label use [Unknown]

NARRATIVE: CASE EVENT DATE: 20160509
